FAERS Safety Report 10513265 (Version 5)
Quarter: 2025Q4

REPORT INFORMATION
  Report Type: Spontaneous
  Country: CA (occurrence: CA)
  Receive Date: 20141013
  Receipt Date: 20251127
  Transmission Date: 20260117
  Serious: Yes (Hospitalization, Other)
  Sender: LEO PHARM
  Company Number: None

PATIENT
  Age: 78 Year
  Sex: Female

DRUGS (48)
  1. DOVONEX [Suspect]
     Active Substance: CALCIPOTRIENE
     Indication: Psoriasis
     Dosage: DOSAGE FORM, ROUTE OF ADMIN, DOSE, FREQ AND THERAPY DURATION, ASKED BUT UNKNOWN
  2. PANTOPRAZOLE SODIUM [Suspect]
     Active Substance: PANTOPRAZOLE SODIUM
     Indication: Product used for unknown indication
     Dosage: DOSAGE FORM, ROUTE OF ADMINISTRATION: ASKED BUT UNKNOWN, DOSE: 40MG, FREQ: 1 EVERY 24 HOURS, THERAPY
  3. FUROSEMIDE [Suspect]
     Active Substance: FUROSEMIDE
     Indication: Oedema peripheral
  4. METFORMIN [Suspect]
     Active Substance: METFORMIN HYDROCHLORIDE
     Indication: Diabetes mellitus
  5. SIMVASTATIN [Suspect]
     Active Substance: SIMVASTATIN
     Indication: Product used for unknown indication
  6. LEVOTHYROXINE SODIUM [Suspect]
     Active Substance: LEVOTHYROXINE SODIUM
     Indication: Hypothyroidism
     Dosage: DOSAGE FORM, ROUTE OF ADMIN: ASKED BUT UNKNOWN, DOSE AND FREQ: 0.088 1 EVERY 1 DAYS, THERAPY DURATIO
  7. ACETAMINOPHEN [Concomitant]
     Active Substance: ACETAMINOPHEN
     Indication: Product used for unknown indication
  8. ASPIRIN [Suspect]
     Active Substance: ASPIRIN
     Indication: Cerebrovascular accident
  9. ALBUTEROL [Suspect]
     Active Substance: ALBUTEROL
     Indication: Product used for unknown indication
  10. AMLODIPINE BESYLATE [Suspect]
     Active Substance: AMLODIPINE BESYLATE
     Indication: Hypertension
     Dosage: ROUTE OF ADMIN, THERAPY DURATION: ASKED BUT UNKNOWN
  11. RANITIDINE HYDROCHLORIDE [Suspect]
     Active Substance: RANITIDINE HYDROCHLORIDE
     Indication: Dyspepsia
     Dosage: DOSAGE FORM: TABLET, ROUTE OF ADMINISTRATION: ASKED BUT UNKNOWN, DOSE: 150.0 MILLIGRAM, FREQ AND THE
  12. TRAMADOL [Suspect]
     Active Substance: TRAMADOL
     Indication: Pain
  13. ALLOPURINOL [Suspect]
     Active Substance: ALLOPURINOL
     Indication: Gout
  14. ALLOPURINOL [Suspect]
     Active Substance: ALLOPURINOL
     Indication: Gout
     Dosage: 200.0 MG
  15. ALLOPURINOL [Suspect]
     Active Substance: ALLOPURINOL
     Indication: Gout
     Dosage: 250.0 MG 1 EVERY 1 DAY
  16. ALLOPURINOL [Suspect]
     Active Substance: ALLOPURINOL
     Indication: Prophylaxis
  17. ALLOPURINOL [Suspect]
     Active Substance: ALLOPURINOL
     Indication: Prophylaxis
     Dosage: 200.0 MG
  18. ALLOPURINOL [Suspect]
     Active Substance: ALLOPURINOL
     Indication: Prophylaxis
     Dosage: 250.0 MG 1 EVERY 1 DAY
  19. FLUTICASONE PROPIONATE [Suspect]
     Active Substance: FLUTICASONE PROPIONATE
     Indication: Wheezing
     Dosage: DOSAGE FORM, ROUTE OF ADMIN: ASKED BUT UNKNOWN, DOSE AND FREQ: 2.0 DOSAGE FORMS 2 EVERY 1 DAYS, AND
  20. FLUTICASONE PROPIONATE [Suspect]
     Active Substance: FLUTICASONE PROPIONATE
     Indication: Cough
     Dosage: DOSAGE FORM, ROUTE OF ADMIN: ASKED BUT UNKNOWN, DOSE AND FREQ: 2.0 DOSAGE FORMS 2 EVERY 1 DAYS, AND
  21. CALCIUM CARBONATE [Suspect]
     Active Substance: CALCIUM CARBONATE
     Indication: Osteoporosis
     Dosage: DOSAGE FORM: NOT SPECIFIED, ROUTE OF ADMINISTRATION: ASKED BUT UNKNOWN, DOSE: 1.0 DOSAGE FORMS, FREQ
  22. LABETALOL HYDROCHLORIDE [Suspect]
     Active Substance: LABETALOL HYDROCHLORIDE
     Indication: Hypertension
     Dosage: DOSAGE FORM, ROUTE OF ADMIN: ASKED BUT UNKNOWN, DOSE AND FREQ: 500MG, 200MG 2 EVERY 1 DAYS, AND THER
  23. LABETALOL HYDROCHLORIDE [Suspect]
     Active Substance: LABETALOL HYDROCHLORIDE
     Indication: Hypertension
  24. HYDRALAZINE [Suspect]
     Active Substance: HYDRALAZINE HYDROCHLORIDE
     Indication: Product used for unknown indication
  25. VITAMIN D [Concomitant]
     Active Substance: VITAMIN D NOS
     Indication: Product used for unknown indication
  26. GLICLAZIDE [Suspect]
     Active Substance: GLICLAZIDE
     Indication: Product used for unknown indication
  27. GLICLAZIDE [Suspect]
     Active Substance: GLICLAZIDE
     Indication: Product used for unknown indication
  28. VALSARTAN [Suspect]
     Active Substance: VALSARTAN
     Indication: Hypertension
  29. CALCIUM GLUCONATE [Suspect]
     Active Substance: CALCIUM GLUCONATE
     Indication: Osteoporosis
  30. CYANOCOBALAMIN [Suspect]
     Active Substance: CYANOCOBALAMIN
     Indication: Product used for unknown indication
  31. BETAMETHASONE VALERATE [Suspect]
     Active Substance: BETAMETHASONE VALERATE
     Indication: Psoriasis
  32. ACETAMINOPHEN\METHOCARBAMOL [Concomitant]
     Active Substance: ACETAMINOPHEN\METHOCARBAMOL
     Indication: Back pain
     Dosage: DOSAGE FORM, ROUTE OF ADMINISTRATION, DOSE AND FREQ AND THERAPY DURATION: ASKED BUT UNKNOWN
  33. PRAMIPEXOLE DIHYDROCHLORIDE [Suspect]
     Active Substance: PRAMIPEXOLE DIHYDROCHLORIDE
     Indication: Restless legs syndrome
     Dosage: DOSAGE FORM, ROUTE OF ADMIN: ASKED BUT UNKNOWN, DOSE AND FREQ: 0.25 MILLIGRAM 1 EVERY 1 DAYS, THERAP
  34. RISEDRONATE SODIUM [Suspect]
     Active Substance: RISEDRONATE SODIUM
     Indication: Osteoporosis
  35. ACEBUTOLOL HYDROCHLORIDE [Suspect]
     Active Substance: ACEBUTOLOL HYDROCHLORIDE
     Indication: Hypertension
     Dosage: DOSAGE FORM: TABLETS, ROUTE OF ADMIN: ASKED BUT UNKNOWN, DOSE AND FREQ: ASKED BUT UNKNOWN, THERAPY D
  36. TACLONEX [Suspect]
     Active Substance: BETAMETHASONE DIPROPIONATE\CALCIPOTRIENE\CALCIPOTRIENE HYDRATE
     Indication: Psoriasis
     Dosage: DOSAGE FORM, ROUTE OF ADMINISTRATION, DOSE AND FREQ, THERAPY DURATION: ASKED BUT UNKNOWN
  37. ALISKIREN HEMIFUMARATE [Suspect]
     Active Substance: ALISKIREN HEMIFUMARATE
     Indication: Hypertension
     Dosage: DOSAGE FORM, ROUTE OF ADMINISTRATION: ASKED BUT UNKNOWN, DOSE AND FREQ: 300.0 MILLIGRAM 1 EVERY 24 H
  38. THEO-DUR [Suspect]
     Active Substance: THEOPHYLLINE ANHYDROUS
     Indication: Hypertension
     Dosage: TABLET (EXTENDED-RELEASE)
  39. JANUVIA [Suspect]
     Active Substance: SITAGLIPTIN PHOSPHATE
     Indication: Diabetes mellitus
     Dosage: DOSAGE FORM: ASKED BUT UNKNOWN, ROUTE OF ADMINISTRATION: ORAL, DOSE AND FREQ: 100 MILLIGRAM 1 EVERY
     Route: 048
  40. ZOCOR [Suspect]
     Active Substance: SIMVASTATIN
     Indication: Cerebrovascular accident
     Dosage: THERAPY DURATION: ASKED BUT UNKNOWN
  41. CLOPIDOGREL BISULFATE [Suspect]
     Active Substance: CLOPIDOGREL BISULFATE
     Indication: Anticoagulant therapy
     Dosage: THERAPY DURATION: ASKED BUT UNKNOWN
  42. ASPIRIN [Concomitant]
     Active Substance: ASPIRIN
     Indication: Cerebrovascular accident
     Dosage: FREQ: ASKED BUT UNKNOWN
     Route: 048
  43. ASPIRIN [Concomitant]
     Active Substance: ASPIRIN
     Indication: Anticoagulant therapy
     Dosage: FREQ: ASKED BUT UNKNOWN
     Route: 048
  44. ERGOCALCIFEROL [Concomitant]
     Active Substance: ERGOCALCIFEROL
     Indication: Product used for unknown indication
     Dosage: DOSAGE FORM, ROUTE OF ADMINISTRATION: ASKED BUT UNKNOWN, DOSE AND FREQ: 1.0 DOSAGE FORMS 1 EVERY 1 D
  45. IBUPROFEN [Concomitant]
     Active Substance: IBUPROFEN
     Indication: Product used for unknown indication
     Dosage: DOSAGE FORM, ROUTE OF ADMINISTRATION, DOSE AND FREQ, THERAPY DURATION, INDICATION: ASKED BUT UNKNOWN
  46. HERBALS\PLANTAGO OVATA LEAF [Concomitant]
     Active Substance: HERBALS\PLANTAGO OVATA LEAF
     Indication: Constipation
     Dosage: DOSAGE FORM, ROUTE OF ADMINISTRATION, DOSE AND FREQ AND THERAPY DURATION: ASKED BUT UNKNOWN
  47. METHOCARBAMOL [Suspect]
     Active Substance: METHOCARBAMOL
     Indication: Hypertension
  48. APIXABAN [Suspect]
     Active Substance: APIXABAN
     Indication: Anticoagulant therapy
     Dosage: DOSAGE FORM: ASKED BUT UNKNOWN, ROUTE OF ADMIN: ORAL, DOSE AND FREQ: 2.0 DOSAGE FORMS 1 EVERY 1 DAYS

REACTIONS (18)
  - Multiple drug therapy [Unknown]
  - Mobility decreased [Unknown]
  - Cognitive disorder [Unknown]
  - Oedema peripheral [Unknown]
  - Off label use [Unknown]
  - Hypertension [Unknown]
  - Medication error [Unknown]
  - Exercise tolerance decreased [Unknown]
  - Abdominal discomfort [Unknown]
  - Diabetes mellitus inadequate control [Unknown]
  - Peripheral swelling [Unknown]
  - Depressed mood [Unknown]
  - Product use issue [Unknown]
  - Blood pressure inadequately controlled [Unknown]
  - Drug ineffective [Unknown]
  - Treatment noncompliance [Unknown]
  - Amnesia [Unknown]
  - Contusion [Unknown]
